FAERS Safety Report 17395556 (Version 1)
Quarter: 2020Q1

REPORT INFORMATION
  Report Type: Report from Study
  Country: US (occurrence: US)
  Receive Date: 20200210
  Receipt Date: 20200210
  Transmission Date: 20200409
  Serious: Yes (Life-Threatening, Hospitalization)
  Sender: FDA-Public Use
  Company Number: US-ROCHE-2543223

PATIENT
  Sex: Male

DRUGS (2)
  1. OBINUTUZUMAB. [Suspect]
     Active Substance: OBINUTUZUMAB
     Indication: HAIRY CELL LEUKAEMIA
     Dosage: CYCLE 2 OF TREATMENT IN CYCLES OF 4 WEEKS ON DAYS 1, 8 AND 15 DURING THE CYCLE 2 AND EVERY 4 WEEKS D
     Route: 042
     Dates: start: 20190821
  2. VEMURAFENIB. [Suspect]
     Active Substance: VEMURAFENIB
     Indication: HAIRY CELL LEUKAEMIA
     Dosage: CONTINUOUSLY IN CYCLES OF 4 WEEKS (28 DAYS) FOR A TOTAL OF 4 CYCLES, TWICE IN A DAY.
     Route: 048
     Dates: start: 20190821

REACTIONS (2)
  - Sepsis [Recovered/Resolved]
  - Colitis [Recovered/Resolved]

NARRATIVE: CASE EVENT DATE: 20191201
